FAERS Safety Report 14885238 (Version 1)
Quarter: 2018Q2

REPORT INFORMATION
  Report Type: Spontaneous
  Country: DE (occurrence: DE)
  Receive Date: 20180511
  Receipt Date: 20180511
  Transmission Date: 20180711
  Serious: Yes (Hospitalization)
  Sender: FDA-Public Use
  Company Number: DE-009507513-1805DEU001435

PATIENT
  Age: 55 Year
  Sex: Male
  Weight: 92 kg

DRUGS (16)
  1. ROCALTROL [Concomitant]
     Active Substance: CALCITRIOL
     Dosage: 0.5 MICROGRAM,, 0-0-1-0
     Route: 048
  2. ASPIRIN. [Concomitant]
     Active Substance: ASPIRIN
     Dosage: 100 MG, 0-1-0-0
     Route: 048
  3. DECORTIN [Concomitant]
     Active Substance: PREDNISONE
     Dosage: 5 MG, 1-0-0-0
     Route: 048
  4. ADENURIC [Suspect]
     Active Substance: FEBUXOSTAT
     Dosage: 80 MG, UNK
     Route: 048
  5. METHOXY POLYETHYLENE GLYCOL-EPOETIN BETA. [Concomitant]
     Active Substance: METHOXY POLYETHYLENE GLYCOL-EPOETIN BETA
     Dosage: 360 MICROGRAM, BY SCHEME
  6. FERRIC CARBOXYMALTOSE [Concomitant]
     Active Substance: FERRIC CARBOXYMALTOSE
     Dosage: AS NEEDED
     Route: 042
  7. BELOC-ZOK [Concomitant]
     Active Substance: METOPROLOL SUCCINATE
     Dosage: 95 MG, 0.5-0-0.5-0
     Route: 048
  8. ZOLOFT [Concomitant]
     Active Substance: SERTRALINE HYDROCHLORIDE
     Dosage: 150 MG, 1-0-0-0
     Route: 048
  9. PANTOZOL [Concomitant]
     Active Substance: PANTOPRAZOLE SODIUM
     Dosage: 40 MG, 1-0-1-0
     Route: 048
  10. INEGY [Suspect]
     Active Substance: EZETIMIBE\SIMVASTATIN
     Dosage: 10|40 MG, 0-0-1-0
     Route: 048
  11. CHOLECALCIFEROL [Concomitant]
     Active Substance: CHOLECALCIFEROL
     Dosage: 20.000 IE, BY SCHEME
     Route: 048
  12. APROVEL [Concomitant]
     Active Substance: IRBESARTAN
     Dosage: 150 MG, 1-0-1-0
     Route: 048
  13. SANDIMMUN [Suspect]
     Active Substance: CYCLOSPORINE
     Dosage: 25 MG, 1-0-0-0
     Route: 048
  14. BICANORM [Concomitant]
     Active Substance: SODIUM BICARBONATE
     Dosage: 1 G, 0-1-0-0
     Route: 048
  15. IMUREK (AZATHIOPRINE) [Suspect]
     Active Substance: AZATHIOPRINE
     Dosage: 75 MG, 1-0-0-0
     Route: 048
  16. TOREM [Concomitant]
     Active Substance: TORSEMIDE
     Dosage: 50 MG, BY SCHEME
     Route: 048

REACTIONS (4)
  - General physical health deterioration [Unknown]
  - Nausea [Unknown]
  - Dizziness [Unknown]
  - Medication error [Unknown]
